FAERS Safety Report 9839064 (Version 8)
Quarter: 2014Q2

REPORT INFORMATION
  Report Type: Report from Study
  Country: US (occurrence: US)
  Receive Date: 20140123
  Receipt Date: 20140501
  Transmission Date: 20141212
  Serious: Yes (Hospitalization, Other)
  Sender: FDA-Public Use
  Company Number: US-FRI-1000052978

PATIENT
  Age: 63 Year
  Sex: Male
  Weight: 70.1 kg

DRUGS (23)
  1. CEFTAROLINE FOSAMIL (OPEN-LABEL) [Suspect]
     Indication: STAPHYLOCOCCAL BACTERAEMIA
     Dosage: 1800 MG
     Route: 042
     Dates: start: 20131227, end: 20140107
  2. TEFLARO [Suspect]
     Indication: STAPHYLOCOCCAL BACTERAEMIA
     Dosage: 1800 MG
     Route: 042
     Dates: start: 20140108, end: 20140119
  3. XARELTO [Suspect]
     Indication: PULMONARY EMBOLISM
     Dosage: 30 MG
     Route: 048
     Dates: start: 20131208, end: 20131223
  4. XARELTO [Suspect]
     Indication: ANTICOAGULANT THERAPY
     Dosage: 20 MG
     Route: 048
     Dates: start: 20131230, end: 20140114
  5. XARELTO [Suspect]
     Dosage: 20 MG
     Route: 048
     Dates: start: 20140118
  6. DIGOXIN [Concomitant]
     Indication: ATRIAL FIBRILLATION
     Dosage: 0.125 MG
     Route: 048
     Dates: start: 20131226
  7. DOCUSATE [Concomitant]
     Indication: DIVERTICULUM
     Dosage: 100 MG
     Route: 048
     Dates: start: 20060519
  8. LEVOTHYROXINE [Concomitant]
     Indication: HYPOTHYROIDISM
     Dosage: 75 MCG
     Route: 048
     Dates: start: 20080618
  9. PREGABALIN [Concomitant]
     Indication: PAIN MANAGEMENT
     Dosage: 50 MG
     Route: 048
     Dates: start: 20061127
  10. ROSUVASTATIN [Concomitant]
     Indication: CARDIOVASCULAR EVENT PROPHYLAXIS
     Dosage: 10 MG
     Route: 048
     Dates: start: 20131205
  11. FE/FOLIC ACID [Concomitant]
     Dosage: 1 MG
     Route: 048
     Dates: start: 20061103
  12. IRON SUPPLEMENTS [Concomitant]
     Indication: IRON DEFICIENCY ANAEMIA
     Dosage: 1125 MG
     Route: 048
     Dates: start: 20060519
  13. LISINOPRIL [Concomitant]
     Indication: HYPERTENSION
     Dosage: 40 MG
     Route: 048
     Dates: start: 20051018
  14. LACTULOSE [Concomitant]
     Indication: CONSTIPATION
     Route: 048
     Dates: start: 20100607
  15. CYCLOBENZAPRINE [Concomitant]
     Indication: MUSCLE SPASMS
     Dosage: 20 MG
     Route: 048
     Dates: start: 20060523
  16. ESOMEPRAZOLE [Concomitant]
     Indication: GASTRITIS
     Dosage: 40 MG
     Route: 048
     Dates: start: 20051018
  17. ACETAMINOPHEN [Concomitant]
     Indication: PAIN MANAGEMENT
     Route: 048
     Dates: start: 20051018
  18. DILTIAZEM [Concomitant]
     Indication: ATRIAL FIBRILLATION
     Dosage: 120 MG
     Route: 048
     Dates: start: 20131227
  19. SODIUM CHLORIDE [Concomitant]
     Indication: NASAL DRYNESS
     Dates: start: 20140103, end: 20140107
  20. HEPARIN [Concomitant]
     Dosage: 25000 UNITS
     Route: 042
     Dates: start: 20131226, end: 20131226
  21. HEPARIN [Concomitant]
     Dosage: 50000 UNITS
     Route: 042
     Dates: start: 20131227, end: 20131227
  22. HEPARIN [Concomitant]
     Dosage: 25000 UNITS
     Route: 042
     Dates: start: 20131229, end: 20131229
  23. HEPARIN [Concomitant]
     Dosage: 25000 UNITS
     Route: 042
     Dates: start: 20131230, end: 20131230

REACTIONS (1)
  - Anaemia [Recovering/Resolving]
